FAERS Safety Report 14270736 (Version 1)
Quarter: 2017Q4

REPORT INFORMATION
  Report Type: Report from Study
  Country: JP (occurrence: JP)
  Receive Date: 20171211
  Receipt Date: 20171211
  Transmission Date: 20180321
  Serious: Yes (Death)
  Sender: FDA-Public Use
  Company Number: JP-OTSUKA-BJ20095645

PATIENT
  Age: 60 Year
  Sex: Male

DRUGS (4)
  1. ARIPIPRAZOLE. [Suspect]
     Active Substance: ARIPIPRAZOLE
     Dosage: 24 MG, QD
     Route: 048
     Dates: start: 20091014, end: 20091025
  2. ARIPIPRAZOLE. [Suspect]
     Active Substance: ARIPIPRAZOLE
     Dosage: 18 MG, QD
     Route: 048
     Dates: start: 20091109, end: 20091118
  3. ARIPIPRAZOLE. [Suspect]
     Active Substance: ARIPIPRAZOLE
     Indication: SCHIZOPHRENIA
     Dosage: 18 MG, QD
     Route: 048
     Dates: start: 20090928, end: 20091013
  4. ARIPIPRAZOLE. [Suspect]
     Active Substance: ARIPIPRAZOLE
     Dosage: 30 MG, QD
     Route: 048
     Dates: start: 20091026, end: 20091108

REACTIONS (2)
  - Acute myocardial infarction [Fatal]
  - Angina pectoris [Fatal]

NARRATIVE: CASE EVENT DATE: 20091204
